FAERS Safety Report 18388132 (Version 4)
Quarter: 2021Q1

REPORT INFORMATION
  Report Type: Report from Study
  Country: US (occurrence: US)
  Receive Date: 20201015
  Receipt Date: 20210310
  Transmission Date: 20210419
  Serious: No
  Sender: FDA-Public Use
  Company Number: NVSC2020US270132

PATIENT
  Sex: Female

DRUGS (2)
  1. GILENYA [Suspect]
     Active Substance: FINGOLIMOD HYDROCHLORIDE
     Dosage: 0.25 MG, QD
     Route: 048
  2. GILENYA [Suspect]
     Active Substance: FINGOLIMOD HYDROCHLORIDE
     Indication: MULTIPLE SCLEROSIS
     Dosage: 0.5 MG, QD
     Route: 048

REACTIONS (17)
  - Memory impairment [Unknown]
  - Decreased interest [Unknown]
  - Disturbance in attention [Unknown]
  - Eye pain [Unknown]
  - Depressed mood [Unknown]
  - Pain in extremity [Unknown]
  - Muscular weakness [Unknown]
  - Depression [Unknown]
  - Breast pain [Unknown]
  - Fatigue [Unknown]
  - Headache [Recovered/Resolved]
  - Product dose omission issue [Unknown]
  - Social avoidant behaviour [Unknown]
  - Hypotension [Unknown]
  - Central nervous system lesion [Unknown]
  - Abdominal pain [Unknown]
  - Mobility decreased [Recovering/Resolving]
